FAERS Safety Report 18033202 (Version 1)
Quarter: 2020Q3

REPORT INFORMATION
  Report Type: Spontaneous
  Country: US (occurrence: US)
  Receive Date: 20200716
  Receipt Date: 20200716
  Transmission Date: 20201103
  Serious: No
  Sender: FDA-Public Use
  Company Number: US-WEST THERAPEUTIC DEVELOPMENT-2020WTD00018

PATIENT
  Age: 39 Year
  Sex: Male
  Weight: 86.17 kg

DRUGS (3)
  1. OXYCODONE [Concomitant]
     Active Substance: OXYCODONE
  2. FENTANYL TRANSDERMAL SYSTEM [Concomitant]
     Active Substance: FENTANYL
  3. LAZANDA [Suspect]
     Active Substance: FENTANYL CITRATE
     Indication: LYMPHOMA
     Dosage: UNK
     Route: 045
     Dates: start: 2019

REACTIONS (3)
  - Pain [Unknown]
  - Product use in unapproved indication [Not Recovered/Not Resolved]
  - Product dose omission issue [Not Recovered/Not Resolved]

NARRATIVE: CASE EVENT DATE: 2019
